FAERS Safety Report 4495217-4 (Version None)
Quarter: 2004Q4

REPORT INFORMATION
  Report Type: 
  Country: None (occurrence: None)
  Receive Date: 20041108
  Receipt Date: 20031125
  Transmission Date: 20050328
  Serious: Yes (Hospitalization)
  Sender: FDA-Public Use
  Company Number: US-GLAXOSMITHKLINE-A0441698A

PATIENT
  Age: 57 Year
  Sex: Female
  Weight: 102.7 kg

DRUGS (12)
  1. AVANDAMET [Suspect]
     Dates: start: 20031010, end: 20031102
  2. AVANDIA [Suspect]
     Dosage: 4MG TWICE PER DAY
     Route: 048
     Dates: start: 20031103, end: 20031121
  3. LEXAPRO [Concomitant]
  4. LASIX [Concomitant]
  5. IMODIUM [Concomitant]
  6. COUMADIN [Concomitant]
  7. PEPCID [Concomitant]
  8. NITROSPRAY [Concomitant]
  9. BENADRYL [Concomitant]
  10. NITROSTAT [Concomitant]
  11. GLUCOPHAGE [Concomitant]
  12. AMARYL [Concomitant]

REACTIONS (1)
  - CARDIAC FAILURE CONGESTIVE [None]
